FAERS Safety Report 16455737 (Version 1)
Quarter: 2019Q2

REPORT INFORMATION
  Report Type: Spontaneous
  Country: None (occurrence: CN)
  Receive Date: 20190619
  Receipt Date: 20190619
  Transmission Date: 20190711
  Serious: No
  Sender: FDA-Public Use
  Company Number: CN-JIANGSU HENGRUI MEDICINE CO., LTD.-2069398

PATIENT
  Age: 78 Year
  Sex: Male

DRUGS (12)
  1. FEMARA [Concomitant]
     Active Substance: LETROZOLE
  2. TAXOTERE [Concomitant]
     Active Substance: DOCETAXEL
  3. ABRAXANE [Concomitant]
     Active Substance: PACLITAXEL
  4. CYCLOPHOSPHAMIDE FOR INJECTION USP, 500 MG, 1 G AND 2 G PER SINGLE-DOS [Suspect]
     Active Substance: CYCLOPHOSPHAMIDE
     Indication: BREAST CANCER
  5. TAXOL [Concomitant]
     Active Substance: PACLITAXEL
  6. ADRIAMYCIN [Concomitant]
     Active Substance: DOXORUBICIN HYDROCHLORIDE
  7. XGEVA [Concomitant]
     Active Substance: DENOSUMAB
  8. ALPELISIB [Concomitant]
     Active Substance: ALPELISIB
  9. AROMASINE [Concomitant]
     Active Substance: EXEMESTANE
  10. FASLODEX [Concomitant]
     Active Substance: FULVESTRANT
  11. IBRANCE [Concomitant]
     Active Substance: PALBOCICLIB
  12. AFINITOR [Concomitant]
     Active Substance: EVEROLIMUS

REACTIONS (1)
  - Breast cancer recurrent [Unknown]
